FAERS Safety Report 7308074-5 (Version None)
Quarter: 2011Q1

REPORT INFORMATION
  Report Type: 
  Country: None (occurrence: None)
  Receive Date: 20110223
  Receipt Date: 20100908
  Transmission Date: 20110831
  Serious: Yes (Hospitalization)
  Sender: FDA-Public Use
  Company Number: US-BAYER-200941447NA

PATIENT
  Sex: Female
  Weight: 127 kg

DRUGS (10)
  1. FLUCONAZOLE [Concomitant]
  2. YASMIN [Suspect]
     Indication: UTERINE LEIOMYOMA
  3. OCELLA [Suspect]
     Indication: VAGINAL HAEMORRHAGE
     Dosage: UNK
     Dates: start: 20080101, end: 20090101
  4. YASMIN [Suspect]
     Indication: VAGINAL HAEMORRHAGE
     Dosage: UNK
     Dates: start: 20080101, end: 20090101
  5. NYSTATIN W/TRIAMCINOLONE [NYSTATIN,TRIAMCINOLONE] [Concomitant]
  6. YAZ [Suspect]
     Indication: UTERINE LEIOMYOMA
  7. HEMATINIC [VIT C,CU+ GLUCON,B12,FE+ GLUCON,LIVER DESICC,B1 HCL] [Concomitant]
  8. YAZ [Suspect]
     Indication: VAGINAL HAEMORRHAGE
     Dosage: UNK
     Dates: start: 20080101, end: 20090101
  9. OCELLA [Suspect]
     Indication: UTERINE LEIOMYOMA
  10. AZOR [Concomitant]
     Indication: BLOOD PRESSURE ABNORMAL
     Dosage: ONCE DAILY

REACTIONS (5)
  - DYSPEPSIA [None]
  - CHOLECYSTITIS CHRONIC [None]
  - ABDOMINAL PAIN [None]
  - CHOLELITHIASIS [None]
  - ABDOMINAL DISTENSION [None]
